FAERS Safety Report 17545679 (Version 1)
Quarter: 2020Q1

REPORT INFORMATION
  Report Type: Spontaneous
  Country: JP (occurrence: JP)
  Receive Date: 20200316
  Receipt Date: 20200316
  Transmission Date: 20200409
  Serious: Yes (Hospitalization, Other)
  Sender: FDA-Public Use
  Company Number: JP-PFIZER INC-2020021749

PATIENT
  Age: 82 Year
  Sex: Female
  Weight: 40.5 kg

DRUGS (38)
  1. MAINTATE [Concomitant]
     Active Substance: BISOPROLOL FUMARATE
     Dosage: 2.5 MG, DAILY  (DIVIDED INTO 2 DOSES A DAY)
     Route: 048
     Dates: start: 20180523
  2. MUCOSOLVAN [Concomitant]
     Active Substance: AMBROXOL HYDROCHLORIDE
     Dosage: 15 MG, 3X/DAY
     Dates: start: 20180426
  3. MINERAMIC [Concomitant]
     Dosage: 2 ML, UNK
  4. HUMULIN R [Concomitant]
     Active Substance: INSULIN HUMAN
     Dosage: 30 UNIT
     Dates: start: 20180428, end: 20180504
  5. PRECEDEX [Concomitant]
     Active Substance: DEXMEDETOMIDINE HYDROCHLORIDE
     Dosage: UNK
     Dates: start: 20180425, end: 20180518
  6. GASCON [Concomitant]
     Active Substance: DIMETHICONE
     Dosage: 40 MG, 3X/DAY
     Route: 048
     Dates: start: 20180503
  7. MEROPENEM. [Suspect]
     Active Substance: MEROPENEM
     Indication: HAEMATOMA INFECTION
     Dosage: 1 G, 2X/DAY
     Route: 041
     Dates: start: 20180427, end: 20180517
  8. INTRALIPOS [Concomitant]
     Active Substance: SOYBEAN OIL
     Dosage: 100 ML, 1X/DAY
     Dates: start: 20180503
  9. VANCOMYCIN HYDROCHLORIDE. [Concomitant]
     Active Substance: VANCOMYCIN HYDROCHLORIDE
     Dosage: 2 G, DAILY (DIVIDED INTO 4 DOSED A DAY)
     Route: 048
     Dates: start: 20180504, end: 20180523
  10. HEPARIN SODIUM. [Concomitant]
     Active Substance: HEPARIN SODIUM
     Dosage: 10000 DF, DAILY
     Dates: start: 20180424, end: 20180427
  11. HEPARIN SODIUM. [Concomitant]
     Active Substance: HEPARIN SODIUM
     Dosage: 10000 DF, DAILY
     Dates: start: 20180502, end: 20180502
  12. MAINTATE [Concomitant]
     Active Substance: BISOPROLOL FUMARATE
     Dosage: 1.25 MG, DAILY (DIVIDED INTO 2 DOSES A DAY)
     Route: 048
     Dates: start: 20180507
  13. VANCOMYCIN HYDROCHLORIDE. [Concomitant]
     Active Substance: VANCOMYCIN HYDROCHLORIDE
     Dosage: 1 G, 1X/DAY
     Route: 041
     Dates: start: 20180427, end: 20180503
  14. NITOROL [Concomitant]
     Active Substance: ISOSORBIDE DINITRATE
     Dosage: 25 MG, UNK
     Dates: start: 20180424, end: 20180503
  15. FENTANYL. [Concomitant]
     Active Substance: FENTANYL
     Dosage: UNK
     Dates: start: 20180424, end: 20180523
  16. EFFIENT [Concomitant]
     Active Substance: PRASUGREL HYDROCHLORIDE
     Dosage: 3.75 MG, 1X/DAY
     Route: 048
     Dates: start: 20180514
  17. BAYASPIRIN [Concomitant]
     Active Substance: ASPIRIN
     Dosage: 100 MG, 1X/DAY
     Route: 048
     Dates: start: 20180513
  18. TAKECAB [Concomitant]
     Active Substance: VONOPRAZAN FUMARATE
     Dosage: 10 MG, 1X/DAY
     Dates: start: 20180426
  19. ITOROL [Concomitant]
     Active Substance: ISOSORBIDE MONONITRATE
     Dosage: 20 MG, 2X/DAY
     Dates: start: 20180503
  20. DESYREL [Concomitant]
     Active Substance: TRAZODONE HYDROCHLORIDE
     Dosage: 1 DF, AS NEEDED (INTERVAL WAS MORE THAN 1 H)
     Route: 048
     Dates: start: 20180425
  21. NEOAMIYU [Concomitant]
     Active Substance: AMINO ACIDS, SOURCE UNSPECIFIED
     Dosage: 200 ML, UNK
  22. MAINTATE [Concomitant]
     Active Substance: BISOPROLOL FUMARATE
     Dosage: 1.875 MG, DAILY (1.25 MG IN THE MORNING,0.625 IN THE EVENING)
     Route: 048
     Dates: start: 20180517
  23. BIOFERMIN R [Concomitant]
     Active Substance: DIETARY SUPPLEMENT\PROBIOTICS
     Dosage: 3 G, DAILY (DIVIDED INTO 3 DOSES A DAY)
     Dates: start: 20180523, end: 20180530
  24. BIOFERMIN R [Concomitant]
     Active Substance: DIETARY SUPPLEMENT\PROBIOTICS
     Dosage: 3 G, DAILY (DIVIDED INTO 3 DOSES A DAY)
     Dates: start: 20180531
  25. HERBAL NOS [Concomitant]
     Active Substance: HERBALS
     Dosage: 1 DF, 3X/DAY
     Dates: start: 20180502
  26. ANAEMETRO [Suspect]
     Active Substance: METRONIDAZOLE
     Indication: CLOSTRIDIUM DIFFICILE COLITIS
     Dosage: 500 MG, 4X/DAY
     Route: 041
     Dates: start: 20180504, end: 20180517
  27. DAIMEDIN MULTI [Concomitant]
     Dosage: 1 DF, UNK
  28. HUMULIN NOS [Concomitant]
     Active Substance: INSULIN HUMAN
     Dosage: 20 UNIT
     Dates: start: 20180512, end: 20180519
  29. MAINTATE [Concomitant]
     Active Substance: BISOPROLOL FUMARATE
     Dosage: 0.625 MG, DAILY (DIVIDED INTO 2 DOSES A DAY)
     Route: 048
     Dates: start: 20180503
  30. BIOFERMIN R [Concomitant]
     Active Substance: DIETARY SUPPLEMENT\PROBIOTICS
     Dosage: 3 G, DAILY (DIVIDED INTO 3 DOSES A DAY)
     Dates: start: 20180426, end: 20180501
  31. GASMOTIN [Concomitant]
     Active Substance: MOSAPRIDE CITRATE
     Dosage: 5 MG, 3X/DAY
     Dates: start: 20180426
  32. MUCODYNE [Concomitant]
     Active Substance: CARBOCYSTEINE
     Dosage: 1500 MG, DAILY (6 TAB IN THREE TIMES)
     Route: 048
     Dates: start: 20180426
  33. ROZEREM [Concomitant]
     Active Substance: RAMELTEON
     Dosage: 8 MG, 1X/DAY
     Route: 048
     Dates: start: 20180425, end: 20180502
  34. LULLAN [Concomitant]
     Active Substance: PEROSPIRONE HYDROCHLORIDE
     Dosage: 4 MG, 2X/DAY (WHEN FELT ANXIETY)
     Route: 048
     Dates: start: 20180427, end: 20180510
  35. ENTERONON-R [Concomitant]
     Active Substance: PROBIOTICS NOS
     Dosage: 3 G, DAILY  (DIVIDED INTO 3 DOSES A DAY)
     Route: 048
     Dates: start: 20180502
  36. HICALIQ [Concomitant]
     Active Substance: CALCIUM GLUCONATE\DEXTROSE\MAGNESIUM SULFATE\POTASSIUM ACETATE\POTASSIUM PHOSPHATE, DIBASIC\ZINC SULFATE
     Dosage: 500 ML, UNK
  37. DESYREL [Concomitant]
     Active Substance: TRAZODONE HYDROCHLORIDE
     Dosage: 25 MG, 1X/DAY
     Route: 048
     Dates: start: 20180510
  38. LULLAN [Concomitant]
     Active Substance: PEROSPIRONE HYDROCHLORIDE
     Dosage: 4 MG, 2X/DAY (WHEN FELT ANXIETY)
     Route: 048
     Dates: start: 20180425

REACTIONS (4)
  - Neutrophil count decreased [Recovered/Resolved]
  - Gastrointestinal haemorrhage [Unknown]
  - Platelet count decreased [Recovered/Resolved]
  - Retroperitoneal haematoma [Unknown]

NARRATIVE: CASE EVENT DATE: 20180504
